FAERS Safety Report 7531539-8 (Version None)
Quarter: 2011Q2

REPORT INFORMATION
  Report Type: 
  Country: None (occurrence: None)
  Receive Date: 20110606
  Receipt Date: 20110606
  Transmission Date: 20111010
  Serious: Yes (Hospitalization)
  Sender: FDA-Public Use
  Company Number: None

PATIENT
  Age: 84 Year
  Sex: Male

DRUGS (2)
  1. CEFTRIAXONE [Suspect]
     Indication: INFECTION
     Dosage: 2GM QDAY IV
     Route: 042
  2. VANCOMYCIN [Suspect]
     Indication: INFECTION
     Dosage: 1000MG BID IV
     Route: 042

REACTIONS (3)
  - RASH MACULO-PAPULAR [None]
  - WHITE BLOOD CELL COUNT DECREASED [None]
  - PYREXIA [None]
